FAERS Safety Report 5812014-5 (Version None)
Quarter: 2008Q3

REPORT INFORMATION
  Report Type: 
  Country: None (occurrence: None)
  Receive Date: 20080716
  Receipt Date: 20080704
  Transmission Date: 20090109
  Serious: Yes (Other)
  Sender: FDA-Public Use
  Company Number: PHHY2008VE13038

PATIENT

DRUGS (2)
  1. VOLTAREN [Suspect]
     Dosage: UNK
     Route: 048
  2. VOLTAREN [Suspect]
     Dosage: 50 MG, BID
     Route: 048

REACTIONS (2)
  - EFFUSION [None]
  - VIRAL INFECTION [None]
